FAERS Safety Report 4424993-1 (Version None)
Quarter: 2004Q3

REPORT INFORMATION
  Report Type: 
  Country: None (occurrence: None)
  Receive Date: 20040811
  Receipt Date: 20040811
  Transmission Date: 20050211
  Serious: Yes (Death)
  Sender: FDA-Public Use
  Company Number: None

PATIENT
  Age: 87 Year
  Sex: Male

DRUGS (8)
  1. IRON DEXTRAN [Suspect]
     Indication: ANAEMIA
     Dosage: 100 MG IV 2 CC VIAL SENT. WITH 25 MG GIVEN 1/2CC
     Route: 042
     Dates: start: 20040725
  2. KCL TAB [Concomitant]
  3. ZOSYN [Concomitant]
  4. INDERAL [Concomitant]
  5. LASIX [Concomitant]
  6. XANAX [Concomitant]
  7. FOLIC ACID [Concomitant]
  8. VIT B-6 [Concomitant]

REACTIONS (5)
  - BACK PAIN [None]
  - CARDIO-RESPIRATORY ARREST [None]
  - COMA [None]
  - DYSPNOEA [None]
  - SOMNOLENCE [None]
